FAERS Safety Report 14146361 (Version 1)
Quarter: 2017Q4

REPORT INFORMATION
  Report Type: Spontaneous
  Country: US (occurrence: None)
  Receive Date: 20171031
  Receipt Date: 20171031
  Transmission Date: 20180321
  Serious: Yes (Death, Hospitalization)
  Sender: FDA-Public Use
  Company Number: None

PATIENT
  Age: 37 Year
  Sex: Female
  Weight: 51.5 kg

DRUGS (1)
  1. MEMANTINE HYDROCHLORIDE. [Suspect]
     Active Substance: MEMANTINE HYDROCHLORIDE
     Dates: end: 20171004

REACTIONS (7)
  - Malignant ascites [None]
  - Bacteraemia [None]
  - Malignant neoplasm progression [None]
  - Vomiting [None]
  - Hospice care [None]
  - Peritonitis bacterial [None]
  - Metastatic malignant melanoma [None]

NARRATIVE: CASE EVENT DATE: 20170929
